FAERS Safety Report 18115091 (Version 1)
Quarter: 2020Q3

REPORT INFORMATION
  Report Type: Spontaneous
  Country: US (occurrence: US)
  Receive Date: 20200805
  Receipt Date: 20200805
  Transmission Date: 20201103
  Serious: No
  Sender: FDA-Public Use
  Company Number: US-ELI_LILLY_AND_COMPANY-US202007013049

PATIENT
  Age: 69 Year

DRUGS (1)
  1. EMGALITY [Suspect]
     Active Substance: GALCANEZUMAB-GNLM
     Indication: PRODUCT USED FOR UNKNOWN INDICATION
     Dosage: 120 MG, UNKNOWN
     Route: 058
     Dates: start: 20200720

REACTIONS (8)
  - Nerve injury [Not Recovered/Not Resolved]
  - Muscle twitching [Not Recovered/Not Resolved]
  - Face oedema [Not Recovered/Not Resolved]
  - Anxiety [Not Recovered/Not Resolved]
  - Erythema [Not Recovered/Not Resolved]
  - Tremor [Not Recovered/Not Resolved]
  - Burning sensation [Not Recovered/Not Resolved]
  - Pruritus [Not Recovered/Not Resolved]
